FAERS Safety Report 4426632-2 (Version None)
Quarter: 2004Q3

REPORT INFORMATION
  Report Type: 
  Country: None (occurrence: None)
  Receive Date: 20040811
  Receipt Date: 20040728
  Transmission Date: 20050211
  Serious: Yes (Hospitalization)
  Sender: FDA-Public Use
  Company Number: 2004080003

PATIENT
  Age: 71 Year
  Sex: Female

DRUGS (2)
  1. DORAL [Suspect]
     Indication: INSOMNIA
     Dosage: 15 MG QD, PO
     Route: 048
     Dates: start: 20040201, end: 20040517
  2. LEVOTHYROXINE SODIUM [Concomitant]

REACTIONS (1)
  - NEUROLEPTIC MALIGNANT SYNDROME [None]
